FAERS Safety Report 10064363 (Version 1)
Quarter: 2014Q2

REPORT INFORMATION
  Report Type: Spontaneous
  Country: US (occurrence: None)
  Receive Date: 20140407
  Receipt Date: 20140407
  Transmission Date: 20141212
  Serious: Yes (Hospitalization)
  Sender: FDA-Public Use
  Company Number: None

PATIENT
  Age: 54 Year
  Sex: Male

DRUGS (1)
  1. QUETIAPINE 600MG [Suspect]

REACTIONS (5)
  - Unresponsive to stimuli [None]
  - Sinus tachycardia [None]
  - Tachypnoea [None]
  - Aggression [None]
  - Drug interaction [None]
